FAERS Safety Report 4387394-0 (Version None)
Quarter: 2004Q2

REPORT INFORMATION
  Report Type: 
  Country: None (occurrence: None)
  Receive Date: 20040630
  Receipt Date: 20040420
  Transmission Date: 20050107
  Serious: Yes (Hospitalization)
  Sender: FDA-Public Use
  Company Number: US-GLAXOSMITHKLINE-A0507874A

PATIENT
  Age: 78 Year
  Sex: Female

DRUGS (5)
  1. ADVAIR HFA [Suspect]
     Indication: PNEUMONIA
     Dosage: 1PUFF TWICE PER DAY
     Route: 055
     Dates: start: 20031212
  2. CARDIZEM [Concomitant]
     Dosage: 240MG TWICE PER DAY
  3. PRILOSEC [Concomitant]
     Route: 048
  4. TYLENOL [Concomitant]
     Indication: OSTEOARTHRITIS
     Route: 048
  5. CEFTIN [Concomitant]
     Indication: PNEUMONIA
     Route: 048
     Dates: start: 20040201, end: 20040201

REACTIONS (4)
  - ATRIAL FIBRILLATION [None]
  - DRUG INEFFECTIVE [None]
  - PHARMACEUTICAL PRODUCT COMPLAINT [None]
  - PNEUMONIA [None]
